FAERS Safety Report 8601239 (Version 3)
Quarter: 2012Q4

REPORT INFORMATION
  Report Type: 
  Country: IE (occurrence: IE)
  Receive Date: 20120606
  Receipt Date: 20120921
  Transmission Date: 20130627
  Serious: Yes (Death, Hospitalization, Other)
  Sender: FDA-Public Use
  Company Number: IE-ELI_LILLY_AND_COMPANY-IE201205009502

PATIENT
  Age: 83 Year
  Sex: Female
  Weight: 36.2 kg

DRUGS (15)
  1. FORSTEO [Suspect]
     Indication: OSTEOPOROSIS
     Dosage: 20 ug, qd
     Route: 058
     Dates: start: 20120420
  2. LYRICA [Concomitant]
  3. MOVICOL [Concomitant]
  4. SOLPADEINE [Concomitant]
  5. ALDACTONE [Concomitant]
  6. WARFARIN [Concomitant]
  7. ZIMOVANE [Concomitant]
  8. CALCICHEW-D3 FORTE [Concomitant]
  9. LANOXIN [Concomitant]
  10. PARACETAMOL [Concomitant]
  11. GALFER [Concomitant]
  12. FUROSEMIDE [Concomitant]
  13. FOSAMAX [Concomitant]
  14. ZYDOL                              /00599202/ [Concomitant]
  15. BUTRANS [Concomitant]

REACTIONS (3)
  - Cardiac failure [Fatal]
  - Mitral valve incompetence [Fatal]
  - Tricuspid valve incompetence [Fatal]
